FAERS Safety Report 11858717 (Version 2)
Quarter: 2016Q2

REPORT INFORMATION
  Report Type: Spontaneous
  Country: US (occurrence: US)
  Receive Date: 20151222
  Receipt Date: 20160412
  Transmission Date: 20160815
  Serious: Yes (Other)
  Sender: FDA-Public Use
  Company Number: US-BEH-2015056862

PATIENT
  Sex: Female
  Weight: 81 kg

DRUGS (19)
  1. PROMETHAZINE [Concomitant]
     Active Substance: PROMETHAZINE\PROMETHAZINE HYDROCHLORIDE
  2. PREDNISONE. [Concomitant]
     Active Substance: PREDNISONE
  3. DIPHENHYDRAMINE. [Concomitant]
     Active Substance: DIPHENHYDRAMINE
  4. EPIPEN [Concomitant]
     Active Substance: EPINEPHRINE
  5. BACLOFEN. [Concomitant]
     Active Substance: BACLOFEN
  6. CALCIUM [Concomitant]
     Active Substance: CALCIUM
  7. METOPROLOL. [Concomitant]
     Active Substance: METOPROLOL
  8. LAMISIL [Concomitant]
     Active Substance: TERBINAFINE HYDROCHLORIDE
  9. COMPLETE MULTIVITAMIN [Concomitant]
     Active Substance: VITAMINS
  10. CLONAZEPAM. [Concomitant]
     Active Substance: CLONAZEPAM
  11. ZYRTEC [Concomitant]
     Active Substance: CETIRIZINE HYDROCHLORIDE
  12. LEVAQUIN [Concomitant]
     Active Substance: LEVOFLOXACIN
  13. ATROVENT [Concomitant]
     Active Substance: IPRATROPIUM BROMIDE
  14. ALBUTEROL. [Concomitant]
     Active Substance: ALBUTEROL
  15. HIZENTRA [Suspect]
     Active Substance: HUMAN IMMUNOGLOBULIN G
     Indication: HYPOGAMMAGLOBULINAEMIA
     Route: 058
     Dates: start: 20110225
  16. HIZENTRA [Suspect]
     Active Substance: HUMAN IMMUNOGLOBULIN G
     Indication: IMMUNODEFICIENCY COMMON VARIABLE
     Route: 058
     Dates: start: 20110225
  17. IMITREX [Concomitant]
     Active Substance: SUMATRIPTAN SUCCINATE
  18. PREDNISONE. [Concomitant]
     Active Substance: PREDNISONE
  19. POTASSIUM CL ER [Concomitant]
     Active Substance: POTASSIUM CHLORIDE

REACTIONS (1)
  - Pneumonia [Unknown]
